FAERS Safety Report 9317639 (Version 2)
Quarter: 2013Q2

REPORT INFORMATION
  Report Type: Spontaneous
  Country: US (occurrence: US)
  Receive Date: 20130530
  Receipt Date: 20130605
  Transmission Date: 20140414
  Serious: Yes (Death, Hospitalization, Other)
  Sender: FDA-Public Use
  Company Number: US-B.I. PHARMACEUTICALS,INC./RIDGEFIELD-2013-BI-14753BP

PATIENT
  Age: 73 Year
  Sex: Male

DRUGS (8)
  1. PRADAXA [Suspect]
     Indication: ATRIAL FIBRILLATION
     Dates: start: 20120910
  2. NEXIUM [Concomitant]
  3. PROSCAR [Concomitant]
  4. HYDROCHLOROTHIAZIDE [Concomitant]
  5. PRINIVIL [Concomitant]
     Dosage: 10 MG
  6. METOPROLOL [Concomitant]
     Dosage: 75 MG
  7. COZAAR [Concomitant]
     Dosage: 40 MG
  8. AMBIEN [Concomitant]

REACTIONS (1)
  - Cerebrovascular accident [Fatal]
